FAERS Safety Report 6823716-6 (Version None)
Quarter: 2010Q3

REPORT INFORMATION
  Report Type: 
  Country: None (occurrence: None)
  Receive Date: 20100708
  Receipt Date: 20060822
  Transmission Date: 20110219
  Serious: No
  Sender: FDA-Public Use
  Company Number: US-PFIZER INC-2006103239

PATIENT
  Age: 27 Year
  Sex: Male
  Weight: 98 kg

DRUGS (3)
  1. CHANTIX [Suspect]
     Indication: SMOKING CESSATION THERAPY
     Dates: start: 20060727, end: 20060801
  2. NEXIUM [Concomitant]
  3. ALLOPURINOL [Concomitant]

REACTIONS (1)
  - NAUSEA [None]
